FAERS Safety Report 7536995-7 (Version None)
Quarter: 2011Q2

REPORT INFORMATION
  Report Type: 
  Country: None (occurrence: None)
  Receive Date: 20110609
  Receipt Date: 20110518
  Transmission Date: 20111010
  Serious: Yes (Life-Threatening, Hospitalization)
  Sender: FDA-Public Use
  Company Number: GXKR2010US11934

PATIENT
  Age: 46 Year
  Sex: Female

DRUGS (8)
  1. OLANZAPINE [Interacting]
     Dosage: 5 MG, DAILY
  2. SULFAMETHOXAZOLE AND TRIMETHOPRIM [Concomitant]
     Indication: URINARY TRACT INFECTION
     Dosage: 800160 MG, BID
  3. METAXALONE [Concomitant]
     Dosage: 800 MG, BID
  4. TRAMADOL HCL [Suspect]
     Indication: PAIN
  5. ZOLPIDEM [Concomitant]
     Dosage: 12.5 MG, UNK
  6. INSULIN LISPRO [Concomitant]
  7. CITALOPRAM HYDROBROMIDE [Interacting]
     Dosage: 10 MG, DAILY
  8. INSULIN GLARGINE [Concomitant]
     Dosage: 60 UNITS NIGHTLY

REACTIONS (11)
  - SEROTONIN SYNDROME [None]
  - PYREXIA [None]
  - MUSCLE RIGIDITY [None]
  - CLONUS [None]
  - HYPERTENSION [None]
  - AGITATION [None]
  - TREMOR [None]
  - DELIRIUM [None]
  - TACHYCARDIA [None]
  - HYPERREFLEXIA [None]
  - DRUG INTERACTION [None]
